FAERS Safety Report 8805044 (Version 2)
Quarter: 2012Q4

REPORT INFORMATION
  Report Type: 
  Country: DE (occurrence: None)
  Receive Date: 20120917
  Receipt Date: 20120927
  Transmission Date: 20130627
  Serious: Yes (Life-Threatening, Hospitalization, Other)
  Sender: FDA-Public Use
  Company Number: DELA20120002

PATIENT
  Age: 33 Year
  Sex: Male

DRUGS (5)
  1. DELATESTRYL [Suspect]
     Indication: PRODUCT USED FOR UNKNOWN INDICATION
  2. NANDROLONE [Suspect]
     Indication: PRODUCT USED FOR UNKNOWN INDICATION
  3. METANDIENONE [Suspect]
     Indication: PRODUCT USED FOR UNKNOWN INDICATION
  4. STANOZOLOL [Suspect]
     Indication: PRODUCT USED FOR UNKNOWN INDICATION
  5. CLENBUTEROL [Suspect]
     Indication: PRODUCT USED FOR UNKNOWN INDICATION

REACTIONS (17)
  - Rhabdomyolysis [None]
  - Renal failure acute [None]
  - Multiple injuries [None]
  - Road traffic accident [None]
  - Pneumothorax [None]
  - Traumatic liver injury [None]
  - Diaphragmatic rupture [None]
  - Kidney rupture [None]
  - Restlessness [None]
  - Delirium [None]
  - Haemodynamic instability [None]
  - Respiratory disorder [None]
  - Multi-organ failure [None]
  - Hyperthermia malignant [None]
  - Propofol infusion syndrome [None]
  - Neuroleptic malignant syndrome [None]
  - Drug abuse [None]
